FAERS Safety Report 6998543-X (Version None)
Quarter: 2010Q3

REPORT INFORMATION
  Report Type: 
  Country: None (occurrence: None)
  Receive Date: 20100920
  Receipt Date: 20091104
  Transmission Date: 20110219
  Serious: No
  Sender: FDA-Public Use
  Company Number: US-ASTRAZENECA-2009SE24694

PATIENT
  Age: 54 Year
  Sex: Female
  Weight: 46.3 kg

DRUGS (9)
  1. SEROQUEL [Suspect]
     Route: 048
  2. SEROQUEL [Suspect]
     Route: 048
     Dates: start: 20090401
  3. LAMICTAL [Concomitant]
  4. LUNESTA [Concomitant]
     Indication: SLEEP DISORDER
  5. SONATA [Concomitant]
     Indication: SLEEP DISORDER
  6. CLONAZEPAM [Concomitant]
  7. TOPAMAX [Concomitant]
  8. HYZAAR [Concomitant]
     Indication: HYPERTENSION
  9. SENNA [Concomitant]
     Indication: CONSTIPATION

REACTIONS (5)
  - ABDOMINAL DISTENSION [None]
  - CONSTIPATION [None]
  - PERSONALITY DISORDER [None]
  - TACHYPHRENIA [None]
  - WEIGHT INCREASED [None]
